FAERS Safety Report 12012946 (Version 1)
Quarter: 2016Q1

REPORT INFORMATION
  Report Type: Spontaneous
  Country: MX (occurrence: MX)
  Receive Date: 20160205
  Receipt Date: 20160205
  Transmission Date: 20160526
  Serious: Yes (Other)
  Sender: FDA-Public Use
  Company Number: MX-PFIZER INC-2016051969

PATIENT
  Age: 59 Year
  Sex: Female
  Weight: 87 kg

DRUGS (1)
  1. AROMASIN [Suspect]
     Active Substance: EXEMESTANE
     Dosage: 1 DF, 1X/DAY (AFTER MEAL)
     Route: 048
     Dates: start: 20120101, end: 20160115

REACTIONS (2)
  - Arthritis [Not Recovered/Not Resolved]
  - Synovial fluid crystal present [Not Recovered/Not Resolved]

NARRATIVE: CASE EVENT DATE: 201511
